FAERS Safety Report 6639328-3 (Version None)
Quarter: 2010Q1

REPORT INFORMATION
  Report Type: 
  Country: None (occurrence: None)
  Receive Date: 20100315
  Receipt Date: 20100301
  Transmission Date: 20100710
  Serious: Yes (Death, Other)
  Sender: FDA-Public Use
  Company Number: KADN20100050

PATIENT
  Age: 20 Year
  Sex: Male
  Weight: 70.3075 kg

DRUGS (4)
  1. MORPHINE [Suspect]
     Dates: end: 20080101
  2. HYDROCODONE [Suspect]
     Dates: end: 20080101
  3. METHAMPHETAMINE HYDROCHLORIDE [Suspect]
     Dates: end: 20080101
  4. ALCOHOL [Suspect]
     Dosage: , PER ORAL
     Route: 048
     Dates: end: 20080101

REACTIONS (4)
  - ACCIDENTAL DEATH [None]
  - ALCOHOL USE [None]
  - DRUG ABUSE [None]
  - DRUG TOXICITY [None]
